FAERS Safety Report 9547383 (Version 2)
Quarter: 2013Q3

REPORT INFORMATION
  Report Type: Spontaneous
  Country: US (occurrence: None)
  Receive Date: 20130920
  Receipt Date: 20130925
  Transmission Date: 20140515
  Serious: Yes (Other)
  Sender: FDA-Public Use
  Company Number: 1895606

PATIENT
  Age: 63 Year
  Sex: Male
  Weight: 86.3 kg

DRUGS (3)
  1. NIPENT [Suspect]
     Indication: CHRONIC LYMPHOCYTIC LEUKAEMIA
     Dates: start: 20100225
  2. (CYCLOPHOSPHAMIDE) [Suspect]
     Indication: CHRONIC LYMPHOCYTIC LEUKAEMIA
     Dates: start: 20100225
  3. RITUXIMAB [Suspect]
     Dates: start: 20100225

REACTIONS (3)
  - Febrile neutropenia [None]
  - Neutrophil count decreased [None]
  - Chills [None]
